FAERS Safety Report 24019965 (Version 1)
Quarter: 2024Q2

REPORT INFORMATION
  Report Type: Spontaneous
  Country: FR (occurrence: FR)
  Receive Date: 20240627
  Receipt Date: 20240627
  Transmission Date: 20240716
  Serious: Yes (Hospitalization, Other)
  Sender: FDA-Public Use
  Company Number: FR-ANIPHARMA-2024-FR-000100

PATIENT
  Age: 96 Year
  Sex: Female

DRUGS (10)
  1. CANDESARTAN [Suspect]
     Active Substance: CANDESARTAN
     Indication: Hypertension
     Dosage: 1 DF DAILY
     Route: 048
     Dates: start: 20230216, end: 20230223
  2. WARFARIN SODIUM [Concomitant]
     Active Substance: WARFARIN SODIUM
     Dosage: 1 DF DAILY
     Route: 048
  3. FUROSEMIDE [Suspect]
     Active Substance: FUROSEMIDE
     Dosage: 1 DF DAILY / 1 DF DAILY
     Route: 048
     Dates: start: 20170216, end: 20170223
  4. FERROUS FUMARATE [Concomitant]
     Active Substance: FERROUS FUMARATE
     Dosage: 2 DF DAILY
     Route: 048
  5. DACRYOSERUM [Concomitant]
     Dosage: CREAM IN TUBE
  6. ACETAMINOPHEN [Concomitant]
     Active Substance: ACETAMINOPHEN
     Dosage: 1 TO 2 CAPSULES 2 TO 3 TIMES A DAY
     Route: 048
  7. DEXERYL [Concomitant]
     Dosage: CREAM IN A TUBE
     Route: 050
  8. MOVICOL [Concomitant]
     Active Substance: POLYETHYLENE GLYCOL 3350\POTASSIUM CHLORIDE\SODIUM BICARBONATE\SODIUM CHLORIDE
     Dosage: 2 DF DAILY
     Route: 048
  9. ESOMEPRAZOLE [Concomitant]
     Active Substance: ESOMEPRAZOLE
     Dosage: 1 DF DAILY
     Route: 048
  10. POTASSIUM CHLORIDE [Concomitant]
     Active Substance: POTASSIUM CHLORIDE
     Dosage: 2 DF DAILY
     Route: 048

REACTIONS (3)
  - Cardiac failure [Recovering/Resolving]
  - Cardiomegaly [Recovering/Resolving]
  - Acute pulmonary oedema [Recovering/Resolving]

NARRATIVE: CASE EVENT DATE: 20170223
